FAERS Safety Report 11655559 (Version 1)
Quarter: 2015Q4

REPORT INFORMATION
  Report Type: Spontaneous
  Country: US (occurrence: US)
  Receive Date: 20151023
  Receipt Date: 20151023
  Transmission Date: 20160304
  Serious: Yes (Other)
  Sender: FDA-Public Use
  Company Number: US-BAYER-2015-446473

PATIENT
  Age: 41 Year
  Sex: Female

DRUGS (1)
  1. CIPRO [Suspect]
     Active Substance: CIPROFLOXACIN HYDROCHLORIDE
     Dosage: UNK 1 PILL
     Dates: start: 20130307

REACTIONS (15)
  - Suicidal ideation [None]
  - Decreased appetite [None]
  - Weight decreased [None]
  - Food intolerance [None]
  - Paraesthesia [None]
  - Crying [None]
  - Burning sensation [None]
  - Skin burning sensation [None]
  - Nausea [None]
  - Panic attack [None]
  - Asthenia [None]
  - Insomnia [None]
  - Vision blurred [None]
  - Dizziness [None]
  - Hypoaesthesia [None]

NARRATIVE: CASE EVENT DATE: 20130307
